FAERS Safety Report 7121391-7 (Version None)
Quarter: 2010Q4

REPORT INFORMATION
  Report Type: 
  Country: None (occurrence: None)
  Receive Date: 20101124
  Receipt Date: 20101111
  Transmission Date: 20110411
  Serious: Yes (Hospitalization, Other)
  Sender: FDA-Public Use
  Company Number: CH-ELI_LILLY_AND_COMPANY-CH201011003680

PATIENT
  Age: 17 Year
  Sex: Male
  Weight: 46 kg

DRUGS (7)
  1. FLUCTINE [Suspect]
     Dosage: 60 MG, DAILY (1/D)
     Route: 048
     Dates: end: 20100922
  2. FLUCTINE [Suspect]
     Dosage: UNK, UNKNOWN
     Dates: start: 20100923, end: 20100926
  3. RISPERDAL [Concomitant]
     Indication: ACUTE PSYCHOSIS
     Dosage: 1 MG, 2/D
     Route: 048
     Dates: start: 20100923, end: 20100924
  4. RISPERDAL [Concomitant]
     Dosage: 2 MG, 2/D
     Route: 048
     Dates: start: 20100925, end: 20100926
  5. RISPERDAL [Concomitant]
     Dosage: UNK, UNKNOWN
  6. NOZINAN /00038601/ [Concomitant]
     Indication: ACUTE PSYCHOSIS
     Dosage: 35 MG, DAILY (1/D)
     Route: 048
     Dates: start: 20100925, end: 20100925
  7. TEMESTA /00273201/ [Concomitant]
     Dosage: UNK, UNK

REACTIONS (8)
  - ACTIVITIES OF DAILY LIVING IMPAIRED [None]
  - CATATONIA [None]
  - CONFUSIONAL STATE [None]
  - DRUG INTERACTION [None]
  - EATING DISORDER [None]
  - PSYCHIATRIC DECOMPENSATION [None]
  - PSYCHOMOTOR HYPERACTIVITY [None]
  - WEIGHT DECREASED [None]
